FAERS Safety Report 8345932-7 (Version None)
Quarter: 2012Q2

REPORT INFORMATION
  Report Type: 
  Country: None (occurrence: None)
  Receive Date: 20120507
  Receipt Date: 20120418
  Transmission Date: 20120825
  Serious: Yes (Other)
  Sender: FDA-Public Use
  Company Number: CN-JNJFOC-20120502434

PATIENT
  Age: 59 Year
  Sex: Female

DRUGS (2)
  1. DECITABINE [Suspect]
     Indication: ACUTE MYELOID LEUKAEMIA
     Dosage: 35 MG/M2, 1 IN 1 DAY, INTRAVENOUS DRIP, 35 MG/M2, 1 IN 1 DAY, INTRAVENOUS DRIP
     Route: 041
     Dates: start: 20110714
  2. DECITABINE [Suspect]
     Indication: ACUTE MYELOID LEUKAEMIA
     Dosage: 35 MG/M2, 1 IN 1 DAY, INTRAVENOUS DRIP, 35 MG/M2, 1 IN 1 DAY, INTRAVENOUS DRIP
     Route: 041
     Dates: end: 20110927

REACTIONS (1)
  - BONE MARROW FAILURE [None]
